FAERS Safety Report 17992818 (Version 1)
Quarter: 2020Q3

REPORT INFORMATION
  Report Type: Spontaneous
  Country: GB (occurrence: GB)
  Receive Date: 20200708
  Receipt Date: 20200708
  Transmission Date: 20201103
  Serious: Yes (Hospitalization)
  Sender: FDA-Public Use
  Company Number: GB-TEVA-2020-GB-1796021

PATIENT
  Age: 61 Year
  Sex: Female

DRUGS (10)
  1. SODIUM VALPROATE [Suspect]
     Active Substance: VALPROATE SODIUM
     Dosage: 600 MILLIGRAM DAILY; AT NIGHT
  2. SODIUM VALPROATE [Suspect]
     Active Substance: VALPROATE SODIUM
     Dosage: 700 MILLIGRAM DAILY; NIGHT
  3. LEVOTHYROXINE. [Suspect]
     Active Substance: LEVOTHYROXINE
     Dosage: 50 MICROGRAM
     Route: 002
  4. PARACETAMOL [Concomitant]
     Active Substance: ACETAMINOPHEN
     Dosage: 4 GRAM
  5. ARIPIPRAZOLE. [Suspect]
     Active Substance: ARIPIPRAZOLE
     Dosage: 10 MG
     Dates: end: 20200615
  6. CYPROTERONE [Concomitant]
     Active Substance: CYPROTERONE
     Dosage: 50 MG
  7. DOCUSATE [Concomitant]
     Active Substance: DOCUSATE
     Dosage: 200 MG
  8. LANSOPRAZOLE. [Suspect]
     Active Substance: LANSOPRAZOLE
     Dosage: 15 MG
  9. LITHIUM CARBONATE. [Suspect]
     Active Substance: LITHIUM CARBONATE
     Dosage: 400 MILLIGRAM DAILY; AT NIGHT
  10. COLECALCIFEROL [Concomitant]
     Active Substance: CHOLECALCIFEROL
     Dosage: 600 IU
     Dates: end: 20200615

REACTIONS (4)
  - Posture abnormal [Unknown]
  - Tremor [Unknown]
  - Gait disturbance [Unknown]
  - Parkinsonism [Not Recovered/Not Resolved]
